FAERS Safety Report 14217632 (Version 2)
Quarter: 2018Q1

REPORT INFORMATION
  Report Type: Spontaneous
  Country: US (occurrence: US)
  Receive Date: 20171123
  Receipt Date: 20180110
  Transmission Date: 20180508
  Serious: No
  Sender: FDA-Public Use
  Company Number: US-PFIZER INC-2017503602

PATIENT
  Sex: Female

DRUGS (13)
  1. ATROPINE SULFATE/DIPHENOXYLATE HYDROCHLORIDE [Suspect]
     Active Substance: ATROPINE SULFATE\DIPHENOXYLATE HYDROCHLORIDE
     Dosage: UNK, AS NEEDED [DIPHENOXYLATE HCL: 2.5 MG]/ [ATROPINE SULFATE: 0.025 MG] (4 TIMES DAILY)
  2. CYMBALTA [Concomitant]
     Active Substance: DULOXETINE HYDROCHLORIDE
     Indication: NEUROPATHY PERIPHERAL
     Dosage: 1 DF, 1X/DAY (DINNER)
  3. ATROPINE SULFATE/DIPHENOXYLATE HYDROCHLORIDE [Suspect]
     Active Substance: ATROPINE SULFATE\DIPHENOXYLATE HYDROCHLORIDE
     Indication: DIARRHOEA
     Dosage: 2 DF, 4X/DAY  (2 PILLS, 4 TIMES A DAY)
  4. MORPHINE SULFATE. [Concomitant]
     Active Substance: MORPHINE SULFATE
     Indication: PAIN
     Dosage: 15 MG, 3X/DAY (MORNING ONLY) (DAYTIME ONLY) (DAYTIME ONLY) (DINNER ONLY)
  5. MORPHINE [Concomitant]
     Active Substance: MORPHINE
     Indication: PAIN
     Dosage: 0.5 ML LIQUID 1 PER HOUR IF NEEDED
  6. MORPHINE [Concomitant]
     Active Substance: MORPHINE
     Indication: DYSPNOEA
  7. PRILOSEC [Concomitant]
     Active Substance: OMEPRAZOLE MAGNESIUM
     Indication: DYSPEPSIA
     Dosage: 40 MG, 1X/DAY (MORNING ONLY)
  8. PROCHLORPERAZINE. [Concomitant]
     Active Substance: PROCHLORPERAZINE
     Indication: VOMITING
  9. LORAZEPAM. [Concomitant]
     Active Substance: LORAZEPAM
     Indication: ANXIETY
     Dosage: UNK UNK, 4X/DAY  (0.5 ML, 1 TAB EVERY 6 HRS)
  10. DEXAMETHASONE. [Concomitant]
     Active Substance: DEXAMETHASONE
     Indication: NAUSEA
     Dosage: 2 MG, 2X/DAY (BREAKFAST AND LUNCH)
  11. NITROFURANTOIN. [Concomitant]
     Active Substance: NITROFURANTOIN
     Indication: URINARY TRACT DISORDER
     Dosage: 100 MG, 1X/DAY (DINNER)
  12. ONDANSETRON HCL [Concomitant]
     Active Substance: ONDANSETRON HYDROCHLORIDE
     Indication: NAUSEA
     Dosage: 8 MG, AS NEEDED (EVERY 8 HRS AS NEEDED)
  13. PROCHLORPERAZINE. [Concomitant]
     Active Substance: PROCHLORPERAZINE
     Indication: NAUSEA
     Dosage: 10 MG, AS NEEDED (EVERY 4 HRS AS NEEDED)

REACTIONS (4)
  - Drug ineffective [Unknown]
  - Product use issue [Unknown]
  - Vomiting [Unknown]
  - Malaise [Unknown]
